FAERS Safety Report 17390757 (Version 2)
Quarter: 2020Q2

REPORT INFORMATION
  Report Type: Spontaneous
  Country: US (occurrence: US)
  Receive Date: 20200207
  Receipt Date: 20200616
  Transmission Date: 20200713
  Serious: No
  Sender: FDA-Public Use
  Company Number: US-LUPIN PHARMACEUTICALS INC.-2020-00128

PATIENT
  Age: 50 Year
  Sex: Female
  Weight: 76.64 kg

DRUGS (4)
  1. TEMAZEPAM CAPSULES, USP, 30 MG [Suspect]
     Active Substance: TEMAZEPAM
     Dosage: 30 MILLIGRAM, OCCASIONALLY/PRN
     Route: 048
     Dates: start: 202001
  2. TEMAZEPAM CAPSULES, USP, 30 MG [Suspect]
     Active Substance: TEMAZEPAM
     Dosage: 30 MILLIGRAM, OCCASIONALLY/PRN
     Route: 048
     Dates: start: 201911
  3. TEMAZEPAM CAPSULES, USP, 30 MG [Suspect]
     Active Substance: TEMAZEPAM
     Dosage: 30 MILLIGRAM, OCCASIONALLY/PRN
     Route: 048
     Dates: start: 201910
  4. TEMAZEPAM CAPSULES, USP, 30 MG [Suspect]
     Active Substance: TEMAZEPAM
     Indication: INSOMNIA
     Dosage: 30 MILLIGRAM, OCCASIONALLY/PRN
     Route: 048
     Dates: start: 201903

REACTIONS (2)
  - C-reactive protein increased [Unknown]
  - Urticaria [Recovered/Resolved]

NARRATIVE: CASE EVENT DATE: 20190919
